FAERS Safety Report 8558730-6 (Version None)
Quarter: 2012Q3

REPORT INFORMATION
  Report Type: 
  Country: None (occurrence: None)
  Receive Date: 20120801
  Receipt Date: 20120727
  Transmission Date: 20120928
  Serious: Yes (Life-Threatening, Hospitalization)
  Sender: FDA-Public Use
  Company Number: CA-ROCHE-1071225

PATIENT
  Sex: Female
  Weight: 86.26 kg

DRUGS (19)
  1. MABTHERA [Suspect]
     Indication: RHEUMATOID ARTHRITIS
     Dosage: LAST DOSE ON 12/SEP/2011
     Route: 042
     Dates: start: 20110210, end: 20120517
  2. LEVEMIR [Concomitant]
  3. SULFASALAZINE [Concomitant]
  4. PREVACID [Concomitant]
  5. VITAMIN B-12 [Concomitant]
  6. CALCIUM/VITAMIN D [Concomitant]
  7. LIPITOR [Concomitant]
  8. METOPROLOL TARTRATE [Concomitant]
  9. EZETIMIBE [Concomitant]
  10. ATACAND [Concomitant]
  11. PREDNISONE [Concomitant]
  12. ACETAMINOPHEN [Concomitant]
     Indication: PREMEDICATION
  13. NOVORAPID [Concomitant]
  14. ASCORBIC ACID [Concomitant]
  15. ASPIRIN [Concomitant]
  16. METFORMIN HYDROCHLORIDE [Concomitant]
  17. METHYLPREDNISOLONE [Concomitant]
     Indication: PREMEDICATION
     Route: 042
  18. VASOTEC [Concomitant]
  19. PLAVIX [Concomitant]

REACTIONS (3)
  - RESPIRATORY DISTRESS [None]
  - CEREBROVASCULAR ACCIDENT [None]
  - THROAT IRRITATION [None]
